FAERS Safety Report 19366659 (Version 7)
Quarter: 2021Q4

REPORT INFORMATION
  Report Type: Report from Study
  Country: US (occurrence: US)
  Receive Date: 20210603
  Receipt Date: 20211121
  Transmission Date: 20220303
  Serious: Yes (Other)
  Sender: FDA-Public Use
  Company Number: NVSC2021US120056

PATIENT
  Age: 48 Year
  Sex: Male

DRUGS (9)
  1. KESIMPTA [Suspect]
     Active Substance: OFATUMUMAB
     Indication: Multiple sclerosis
     Dosage: 20 MG, QMO (STARTING AT WEEK 4 AS DIRECTED)
     Route: 058
  2. KESIMPTA [Suspect]
     Active Substance: OFATUMUMAB
     Indication: Relapsing-remitting multiple sclerosis
     Dosage: 20 MG, QMO
     Route: 058
     Dates: start: 20210511
  3. KESIMPTA [Suspect]
     Active Substance: OFATUMUMAB
     Indication: Secondary progressive multiple sclerosis
  4. KESIMPTA [Suspect]
     Active Substance: OFATUMUMAB
     Indication: Clinically isolated syndrome
  5. BACLOFEN [Concomitant]
     Active Substance: BACLOFEN
     Indication: Product used for unknown indication
     Dosage: UNK
     Route: 065
  6. CLONAZEPAM [Concomitant]
     Active Substance: CLONAZEPAM
     Indication: Product used for unknown indication
     Dosage: UNK
     Route: 065
  7. AMITRIPTYLINE HYDROCHLORIDE [Concomitant]
     Active Substance: AMITRIPTYLINE HYDROCHLORIDE
     Indication: Product used for unknown indication
     Dosage: UNK
     Route: 065
  8. VITAMIN D2 [Concomitant]
     Active Substance: ERGOCALCIFEROL
     Indication: Product used for unknown indication
     Dosage: UNK
     Route: 065
  9. VITAMIN B12 [Concomitant]
     Active Substance: CYANOCOBALAMIN
     Indication: Product used for unknown indication
     Dosage: UNK
     Route: 065

REACTIONS (20)
  - Paralysis [Recovered/Resolved]
  - Neuropathy peripheral [Recovering/Resolving]
  - Multiple sclerosis relapse [Unknown]
  - Band sensation [Recovering/Resolving]
  - Fall [Recovering/Resolving]
  - Balance disorder [Recovering/Resolving]
  - Hyperhidrosis [Recovered/Resolved]
  - Sleep disorder [Recovered/Resolved]
  - Muscle spasms [Recovered/Resolved]
  - Fatigue [Unknown]
  - Hot flush [Unknown]
  - Feeling cold [Unknown]
  - Depression [Unknown]
  - Pain in extremity [Unknown]
  - Lethargy [Unknown]
  - Sleep disorder [Unknown]
  - Peroneal nerve palsy [Unknown]
  - Stress [Unknown]
  - Headache [Unknown]
  - Drug ineffective [Unknown]

NARRATIVE: CASE EVENT DATE: 20210916
